FAERS Safety Report 24997127 (Version 2)
Quarter: 2025Q1

REPORT INFORMATION
  Report Type: Spontaneous
  Country: CH (occurrence: CH)
  Receive Date: 20250221
  Receipt Date: 20250325
  Transmission Date: 20250408
  Serious: Yes (Other)
  Sender: TAKEDA
  Company Number: CH-TAKEDA-2025TUS018973

PATIENT
  Age: 56 Year
  Sex: Male

DRUGS (6)
  1. FEBUXOSTAT [Suspect]
     Active Substance: FEBUXOSTAT
     Indication: Product used for unknown indication
  2. Votum [Concomitant]
  3. ASPIRIN [Concomitant]
     Active Substance: ASPIRIN
  4. TILUR [Concomitant]
     Active Substance: ACEMETACIN
  5. ATORVASTATIN [Concomitant]
     Active Substance: ATORVASTATIN
  6. SURMONTIL [Concomitant]
     Active Substance: TRIMIPRAMINE MALEATE

REACTIONS (1)
  - Osteonecrosis [Recovered/Resolved]

NARRATIVE: CASE EVENT DATE: 20241101
